FAERS Safety Report 5270040-1 (Version None)
Quarter: 2007Q1

REPORT INFORMATION
  Report Type: 
  Country: None (occurrence: None)
  Receive Date: 20061214
  Receipt Date: 20060712
  Transmission Date: 20070707
  Serious: Yes (Hospitalization, Other)
  Sender: FDA-Public Use
  Company Number: 2006063247

PATIENT
  Age: 66 Year
  Sex: Female
  Weight: 72.1219 kg

DRUGS (6)
  1. BEXTRA [Suspect]
     Indication: ARTHRITIS
     Dosage: 20 MG (10 MG, 2 IN 1 D)
     Dates: start: 20020923, end: 20030527
  2. BEXTRA [Suspect]
     Indication: JOINT SWELLING
     Dosage: 20 MG (10 MG, 2 IN 1 D)
     Dates: start: 20020923, end: 20030527
  3. IMIPRAMINE [Concomitant]
  4. DOXYCYCLINE [Concomitant]
  5. ZEBETA [Concomitant]
  6. SYNTHROID [Concomitant]

REACTIONS (1)
  - MYOCARDIAL INFARCTION [None]
